FAERS Safety Report 7807219-8 (Version None)
Quarter: 2011Q4

REPORT INFORMATION
  Report Type: 
  Country: None (occurrence: None)
  Receive Date: 20111011
  Receipt Date: 20111003
  Transmission Date: 20120403
  Serious: Yes (Hospitalization)
  Sender: FDA-Public Use
  Company Number: PHEH2011US04833

PATIENT
  Sex: Female
  Weight: 49.2 kg

DRUGS (6)
  1. TOBI [Suspect]
     Indication: CYSTIC FIBROSIS
     Dosage: 300 MG, BID FOR 28 DAYS
     Dates: start: 20110524
  2. ALBUTEROL [Concomitant]
     Dosage: 1 VIAL BD
  3. TOBI [Suspect]
     Indication: PSEUDOMONAS INFECTION
  4. PULMOZYME [Concomitant]
  5. NASACORT [Concomitant]
     Dosage: 2 PUFF BID
  6. FLOVENT [Concomitant]
     Dosage: 2 PUFFS BID

REACTIONS (1)
  - UPPER RESPIRATORY TRACT INFECTION [None]
